FAERS Safety Report 19138404 (Version 3)
Quarter: 2021Q2

REPORT INFORMATION
  Report Type: Report from Study
  Country: US (occurrence: US)
  Receive Date: 20210415
  Receipt Date: 20210529
  Transmission Date: 20210717
  Serious: Yes (Other)
  Sender: FDA-Public Use
  Company Number: NVSC2021US082320

PATIENT
  Sex: Male

DRUGS (4)
  1. ENTRESTO [Suspect]
     Active Substance: SACUBITRIL\VALSARTAN
     Dosage: 50 (24/26) MG, BID
     Route: 048
  2. NITROGLYCERIN. [Suspect]
     Active Substance: NITROGLYCERIN
     Indication: ANGINA PECTORIS
     Dosage: UNK UNK, UNKNOWN
     Route: 065
  3. ENTRESTO [Suspect]
     Active Substance: SACUBITRIL\VALSARTAN
     Dosage: 2 DF (49/51 MG), BID
     Route: 048
  4. ENTRESTO [Suspect]
     Active Substance: SACUBITRIL\VALSARTAN
     Indication: CARDIAC FAILURE
     Dosage: 50 (24/26) MG, BID
     Route: 048
     Dates: start: 20210315

REACTIONS (8)
  - Feeling abnormal [Unknown]
  - Chills [Unknown]
  - Fall [Unknown]
  - Fatigue [Unknown]
  - Hypotension [Unknown]
  - Extra dose administered [Unknown]
  - Loss of consciousness [Unknown]
  - Dizziness [Unknown]
